FAERS Safety Report 19195348 (Version 1)
Quarter: 2021Q2

REPORT INFORMATION
  Report Type: Spontaneous
  Country: US (occurrence: US)
  Receive Date: 20210429
  Receipt Date: 20210429
  Transmission Date: 20210717
  Serious: Yes (Death)
  Sender: FDA-Public Use
  Company Number: None

PATIENT
  Age: 53 Year
  Sex: Male

DRUGS (4)
  1. ENTECAVIR. [Suspect]
     Active Substance: ENTECAVIR
     Indication: LIVER DISORDER
     Route: 048
     Dates: start: 20200731, end: 20210425
  2. CIPROFLOXACIN, METOLAZONE [Concomitant]
  3. OMEPRAZOLE, LACTULOSE, ESZOPICLONE, ONDANSETRON, BUMETANIDE, OXYCODONE [Concomitant]
  4. LENVIMA, NADOLOL, XIFAXAN, METOLAZONE, SPIRONOLACTONE, BUPROPION [Concomitant]

REACTIONS (1)
  - Death [None]

NARRATIVE: CASE EVENT DATE: 20210425
